FAERS Safety Report 11107911 (Version 1)
Quarter: 2015Q2

REPORT INFORMATION
  Report Type: Spontaneous
  Country: US (occurrence: US)
  Receive Date: 20150512
  Receipt Date: 20150512
  Transmission Date: 20150821
  Serious: No
  Sender: FDA-Public Use
  Company Number: US-BAYER-2015-202011

PATIENT
  Sex: Female

DRUGS (1)
  1. ALEVE [Suspect]
     Active Substance: NAPROXEN SODIUM
     Dosage: UNK, BID
     Dates: start: 20150407

REACTIONS (2)
  - Rash [Unknown]
  - Incorrect drug administration duration [None]

NARRATIVE: CASE EVENT DATE: 20150407
